FAERS Safety Report 10779677 (Version 1)
Quarter: 2015Q1

REPORT INFORMATION
  Report Type: Spontaneous
  Country: JP (occurrence: None)
  Receive Date: 20150206
  Receipt Date: 20150206
  Transmission Date: 20150721
  Serious: Yes (Other)
  Sender: FDA-Public Use
  Company Number: SP08755

PATIENT
  Age: 74 Year
  Sex: Female

DRUGS (2)
  1. GASCON [Concomitant]
     Active Substance: DIMETHICONE
  2. MOVIPREP [Suspect]
     Active Substance: ASCORBIC ACID\POLYETHYLENE GLYCOL 3350\POTASSIUM CHLORIDE\SODIUM ASCORBATE\SODIUM CHLORIDE\SODIUM SULFATE
     Indication: BOWEL PREPARATION
     Route: 048
     Dates: start: 20141212, end: 20141212

REACTIONS (3)
  - Feeling abnormal [None]
  - Mallory-Weiss syndrome [None]
  - Vomiting [None]

NARRATIVE: CASE EVENT DATE: 201412
